FAERS Safety Report 13730549 (Version 1)
Quarter: 2017Q3

REPORT INFORMATION
  Report Type: Spontaneous
  Country: US (occurrence: US)
  Receive Date: 20170707
  Receipt Date: 20170707
  Transmission Date: 20171127
  Serious: Yes (Hospitalization, Other)
  Sender: FDA-Public Use
  Company Number: US-JNJFOC-20170411009

PATIENT
  Age: 54 Year
  Sex: Female
  Weight: 95 kg

DRUGS (4)
  1. XARELTO [Suspect]
     Active Substance: RIVAROXABAN
     Indication: DEEP VEIN THROMBOSIS
     Dosage: 15MG-20MG
     Route: 048
     Dates: start: 20140112, end: 20160411
  2. ASPIRIN. [Suspect]
     Active Substance: ASPIRIN
     Indication: PRODUCT USED FOR UNKNOWN INDICATION
     Route: 048
  3. XARELTO [Suspect]
     Active Substance: RIVAROXABAN
     Indication: PULMONARY EMBOLISM
     Dosage: 15MG-20MG
     Route: 048
     Dates: start: 20140112, end: 20160411
  4. PLAVIX [Suspect]
     Active Substance: CLOPIDOGREL BISULFATE
     Indication: STENT PLACEMENT
     Route: 048

REACTIONS (3)
  - Gastrointestinal angiodysplasia haemorrhagic [Recovering/Resolving]
  - Gastrointestinal haemorrhage [Unknown]
  - Shock haemorrhagic [Unknown]

NARRATIVE: CASE EVENT DATE: 20151002
